FAERS Safety Report 15531857 (Version 1)
Quarter: 2018Q4

REPORT INFORMATION
  Report Type: Spontaneous
  Country: US (occurrence: US)
  Receive Date: 20181019
  Receipt Date: 20181019
  Transmission Date: 20190205
  Serious: No
  Sender: FDA-Public Use
  Company Number: US-ASTRAZENECA-2018SF31543

PATIENT
  Sex: Male

DRUGS (1)
  1. ZOMIG [Suspect]
     Active Substance: ZOLMITRIPTAN
     Indication: CLUSTER HEADACHE
     Dosage: 5 MG TWO TIMES A DAY PRN
     Route: 045

REACTIONS (4)
  - Product dose omission [Not Recovered/Not Resolved]
  - Malaise [Not Recovered/Not Resolved]
  - Cluster headache [Not Recovered/Not Resolved]
  - Drug ineffective [Not Recovered/Not Resolved]
